FAERS Safety Report 21100285 (Version 3)
Quarter: 2025Q4

REPORT INFORMATION
  Report Type: Spontaneous
  Country: US (occurrence: US)
  Receive Date: 20220719
  Receipt Date: 20251010
  Transmission Date: 20260117
  Serious: No
  Sender: GLAXOSMITHKLINE
  Company Number: US-GSKCCFUS-Case-01436718_AE-82466

PATIENT
  Sex: Female

DRUGS (2)
  1. ADVAIR HFA [Suspect]
     Active Substance: FLUTICASONE PROPIONATE\SALMETEROL XINAFOATE
     Indication: Asthma
     Dosage: 1 PUFF(S), BID, 45/21, 1 PUFF TWICE DAILY INSTEAD OF 2 PUFFS TWICE DAILY
     Dates: start: 1980
  2. ADVAIR HFA [Suspect]
     Active Substance: FLUTICASONE PROPIONATE\SALMETEROL XINAFOATE
     Dosage: 2 PUFF(S), QD (MORNING)
     Dates: end: 20250131

REACTIONS (6)
  - Fatigue [Unknown]
  - Weight decreased [Unknown]
  - Tooth disorder [Unknown]
  - Gingivitis [Unknown]
  - Tooth fracture [Unknown]
  - Underdose [Unknown]

NARRATIVE: CASE EVENT DATE: 20200101
